FAERS Safety Report 4834879-6 (Version None)
Quarter: 2005Q4

REPORT INFORMATION
  Report Type: 
  Country: None (occurrence: None)
  Receive Date: 20051115
  Receipt Date: 20051030
  Transmission Date: 20060501
  Serious: Yes (Hospitalization)
  Sender: FDA-Public Use
  Company Number: 8013101

PATIENT
  Age: 49 Year
  Sex: Female

DRUGS (2)
  1. KEPPRA [Suspect]
     Indication: CONVULSION
     Dates: start: 20050101, end: 20050101
  2. KEPPRA [Suspect]
     Indication: CONVULSION
     Dosage: 2000 MG/D
     Dates: start: 20050101

REACTIONS (7)
  - ALOPECIA [None]
  - BLOOD MAGNESIUM DECREASED [None]
  - CHEST PAIN [None]
  - INSOMNIA [None]
  - MYOCARDIAL INFARCTION [None]
  - PAIN IN EXTREMITY [None]
  - PALPITATIONS [None]
